FAERS Safety Report 8432484-6 (Version None)
Quarter: 2012Q2

REPORT INFORMATION
  Report Type: 
  Country: None (occurrence: None)
  Receive Date: 20120613
  Receipt Date: 20120608
  Transmission Date: 20120825
  Serious: No
  Sender: FDA-Public Use
  Company Number: US-VERTEX PHARMACEUTICALS INC.-AE-2011-001074

PATIENT
  Sex: Female
  Weight: 58.566 kg

DRUGS (5)
  1. VX-950 [Suspect]
     Indication: HEPATITIS C
     Route: 048
     Dates: start: 20110525, end: 20110815
  2. PROGESTERONE [Concomitant]
     Indication: MENOPAUSE
     Route: 048
  3. COPEGUS [Suspect]
     Route: 048
     Dates: start: 20110816, end: 20110818
  4. PEGASYS [Suspect]
     Indication: HEPATITIS C
     Route: 058
     Dates: start: 20110525, end: 20110818
  5. COPEGUS [Suspect]
     Indication: HEPATITIS C
     Route: 048
     Dates: start: 20110525, end: 20110815

REACTIONS (3)
  - ERYTHEMA [None]
  - PERIORBITAL OEDEMA [None]
  - FACE OEDEMA [None]
